FAERS Safety Report 14383496 (Version 2)
Quarter: 2018Q1

REPORT INFORMATION
  Report Type: Report from Study
  Country: HK (occurrence: HK)
  Receive Date: 20180115
  Receipt Date: 20180208
  Transmission Date: 20180509
  Serious: Yes (Other)
  Sender: FDA-Public Use
  Company Number: HK-AMGEN-HKGNI2017047190

PATIENT
  Age: 31 Year
  Sex: Female

DRUGS (8)
  1. BLINATUMOMAB [Suspect]
     Active Substance: BLINATUMOMAB
     Indication: PHILADELPHIA CHROMOSOME POSITIVE
     Dosage: 28 MUG, QD
     Route: 042
     Dates: start: 20170222, end: 20170325
  2. PANTOPRAZOLE [Concomitant]
     Active Substance: PANTOPRAZOLE
     Dosage: 40 MG, QD
  3. TRANEXAMIC ACID. [Concomitant]
     Active Substance: TRANEXAMIC ACID
     Dosage: 500 MG, TID
  4. MICAFUNGIN [Concomitant]
     Active Substance: MICAFUNGIN
     Indication: ANTIFUNGAL PROPHYLAXIS
  5. BLINATUMOMAB [Suspect]
     Active Substance: BLINATUMOMAB
     Indication: ACUTE LYMPHOCYTIC LEUKAEMIA RECURRENT
     Dosage: 9 MUG, QD
     Route: 042
  6. FEBUXOSTAT. [Concomitant]
     Active Substance: FEBUXOSTAT
     Dosage: 80 MG, QD
  7. COTRIMOXAZOLE [Concomitant]
     Active Substance: SULFAMETHOXAZOLE\TRIMETHOPRIM
     Dosage: 960 MG, BID (TWICE DAILY 2 DAYS PER WEEK)
  8. GABAPENTIN. [Concomitant]
     Active Substance: GABAPENTIN
     Dosage: 300 MG, ( NOCTE)

REACTIONS (9)
  - Seizure [Recovered/Resolved]
  - Tremor [Recovered/Resolved]
  - Dysgraphia [Unknown]
  - Pyrexia [Unknown]
  - Subarachnoid haemorrhage [Unknown]
  - Vision blurred [Recovered/Resolved]
  - Fibrin D dimer increased [Unknown]
  - Blood fibrinogen increased [Unknown]
  - Trichosporon infection [Unknown]

NARRATIVE: CASE EVENT DATE: 20170325
